FAERS Safety Report 20679357 (Version 1)
Quarter: 2022Q2

REPORT INFORMATION
  Report Type: Spontaneous
  Country: US (occurrence: US)
  Receive Date: 20220406
  Receipt Date: 20220406
  Transmission Date: 20220720
  Serious: Yes (Hospitalization, Other)
  Sender: FDA-Public Use
  Company Number: US-PFIZER INC-202200511806

PATIENT
  Age: 73 Year
  Sex: Male

DRUGS (6)
  1. RITUXIMAB [Suspect]
     Active Substance: RITUXIMAB
     Indication: Pemphigus
     Dosage: 375 MG/M2 WEEKLY FOR THREE WEEKS, FOLLOWED BY IVIG ON THE FOURTH WEEK FOR THE FIRST TWO MONTHS
  2. RITUXIMAB [Suspect]
     Active Substance: RITUXIMAB
     Dosage: MONTHLY RITUXIMAB AND IVIG CYCLES AS PREVIOUSLY DESCRIBED
  3. METHYLPREDNISOLONE [Concomitant]
     Active Substance: METHYLPREDNISOLONE
     Indication: Pemphigus
     Dosage: 96 MG (SUBSEQUENTLY TAPERED DOWN BY 25-33 % EVERY 2-3 WEEKS)
  4. METHYLPREDNISOLONE [Concomitant]
     Active Substance: METHYLPREDNISOLONE
     Dosage: TAPERED DOWN TO A DOSE OF 24 MG
  5. HUMAN IMMUNOGLOBULIN G [Concomitant]
     Active Substance: HUMAN IMMUNOGLOBULIN G
     Indication: Pemphigus
     Dosage: IVIG ON THE FOURTH WEEK FOR THE FIRST TWO MONTHS; IVIG CYCLES
  6. HUMAN IMMUNOGLOBULIN G [Concomitant]
     Active Substance: HUMAN IMMUNOGLOBULIN G
     Dosage: 2000 MG/KG

REACTIONS (3)
  - Deep vein thrombosis [Unknown]
  - Pulmonary embolism [Unknown]
  - Pneumocystis jirovecii pneumonia [Unknown]
